FAERS Safety Report 16648399 (Version 3)
Quarter: 2020Q4

REPORT INFORMATION
  Report Type: Spontaneous
  Country: CH (occurrence: CH)
  Receive Date: 20190730
  Receipt Date: 20201209
  Transmission Date: 20210113
  Serious: Yes (Hospitalization, Other)
  Sender: FDA-Public Use
  Company Number: CH-OTSUKA-2019_027689

PATIENT
  Age: 45 Year
  Sex: Female

DRUGS (11)
  1. FLUCTINE [Suspect]
     Active Substance: FLUOXETINE HYDROCHLORIDE
     Indication: SCHIZOAFFECTIVE DISORDER
     Dosage: 20 MG, QD (IN MORNING)
     Route: 048
  2. ABILIFY [Suspect]
     Active Substance: ARIPIPRAZOLE
     Dosage: 25 MG, QD
     Route: 065
  3. ABILIFY [Suspect]
     Active Substance: ARIPIPRAZOLE
     Dosage: 20 MG, QD
     Route: 065
  4. FLUCTINE [Suspect]
     Active Substance: FLUOXETINE HYDROCHLORIDE
     Dosage: IN TOTAL 17 TABLETS, 20 MG EACH
     Route: 048
  5. ABILIFY [Suspect]
     Active Substance: ARIPIPRAZOLE
     Indication: SCHIZOAFFECTIVE DISORDER
     Dosage: 20 MG, QD (IN MORNING)
     Route: 048
  6. ABILIFY [Suspect]
     Active Substance: ARIPIPRAZOLE
     Dosage: 45 MG (3X15MG), QD
     Route: 048
  7. FLUCTINE [Suspect]
     Active Substance: FLUOXETINE HYDROCHLORIDE
     Dosage: 20 MG, QD
     Route: 048
  8. SOLIAN [Concomitant]
     Active Substance: AMISULPRIDE
     Indication: PRODUCT USED FOR UNKNOWN INDICATION
     Dosage: 100 MG, BID (2 X 100 MG/DAY)
     Route: 048
  9. LITHIOFOR [Concomitant]
     Active Substance: LITHIUM SULFATE
     Indication: PRODUCT USED FOR UNKNOWN INDICATION
     Dosage: 24 MMOL, QD (12-0-12)
     Route: 065
  10. ABILIFY [Suspect]
     Active Substance: ARIPIPRAZOLE
     Dosage: 30 MG (2X15MG), QD (HOME BASED TREATMENT)
     Route: 065
  11. ABILIFY [Suspect]
     Active Substance: ARIPIPRAZOLE
     Dosage: 15 MG, QD
     Route: 048

REACTIONS (9)
  - Overdose [Unknown]
  - Antipsychotic drug level above therapeutic [Recovering/Resolving]
  - Product use in unapproved indication [Unknown]
  - Fall [Recovered/Resolved]
  - Inappropriate schedule of product administration [Unknown]
  - Drug interaction [Unknown]
  - Psychomotor hyperactivity [Unknown]
  - Psychiatric decompensation [Unknown]
  - Treatment noncompliance [Unknown]

NARRATIVE: CASE EVENT DATE: 20160615
